FAERS Safety Report 7393575-4 (Version None)
Quarter: 2011Q2

REPORT INFORMATION
  Report Type: 
  Country: None (occurrence: None)
  Receive Date: 20110405
  Receipt Date: 20110329
  Transmission Date: 20111010
  Serious: No
  Sender: FDA-Public Use
  Company Number: US-PFIZER INC-2011071043

PATIENT
  Sex: Female

DRUGS (1)
  1. AROMASIN [Suspect]
     Dosage: 25 MG, 1X/DAY

REACTIONS (4)
  - PAIN IN JAW [None]
  - JAW DISORDER [None]
  - GINGIVAL PAIN [None]
  - GINGIVAL SWELLING [None]
